FAERS Safety Report 9775072 (Version 1)
Quarter: 2013Q4

REPORT INFORMATION
  Report Type: Spontaneous
  Country: US (occurrence: US)
  Receive Date: 20131220
  Receipt Date: 20131220
  Transmission Date: 20140711
  Serious: No
  Sender: FDA-Public Use
  Company Number: US-GLAXOSMITHKLINE-A1047148A

PATIENT
  Age: 29 Year
  Sex: Female

DRUGS (1)
  1. AVODART [Suspect]
     Indication: ILL-DEFINED DISORDER
     Route: 062

REACTIONS (2)
  - Accidental exposure to product [Unknown]
  - Exposure during pregnancy [Unknown]
